FAERS Safety Report 5746480-0 (Version None)
Quarter: 2008Q2

REPORT INFORMATION
  Report Type: 
  Country: None (occurrence: None)
  Receive Date: 20080522
  Receipt Date: 20080519
  Transmission Date: 20081010
  Serious: Yes (Hospitalization)
  Sender: FDA-Public Use
  Company Number: B0521529A

PATIENT
  Age: 67 Year
  Sex: Female

DRUGS (2)
  1. TYVERB [Suspect]
     Indication: BREAST CANCER
     Dosage: 1250MG PER DAY
     Route: 048
     Dates: start: 20080401
  2. TAXOL [Suspect]
     Indication: BREAST CANCER
     Route: 042

REACTIONS (1)
  - APPENDICITIS PERFORATED [None]
